FAERS Safety Report 26044028 (Version 2)
Quarter: 2025Q4

REPORT INFORMATION
  Report Type: Spontaneous
  Country: US (occurrence: US)
  Receive Date: 20251114
  Receipt Date: 20251230
  Transmission Date: 20260117
  Serious: No
  Sender: GRANULES PHARMACEUTICALS INC
  Company Number: US-GRANULES-US-2025GRASPO00608

PATIENT

DRUGS (2)
  1. LORATADINE [Suspect]
     Active Substance: LORATADINE
     Indication: Urticaria
     Route: 065
  2. LORATADINE [Suspect]
     Active Substance: LORATADINE
     Indication: Prophylaxis

REACTIONS (1)
  - Drug ineffective for unapproved indication [Unknown]
